FAERS Safety Report 8510820-X (Version None)
Quarter: 2012Q3

REPORT INFORMATION
  Report Type: 
  Country: None (occurrence: None)
  Receive Date: 20120703
  Receipt Date: 20120620
  Transmission Date: 20120928
  Serious: Yes (Other)
  Sender: FDA-Public Use
  Company Number: 2012AP001913

PATIENT
  Age: 67 Year
  Sex: Female

DRUGS (2)
  1. RAMIPRIL [Suspect]
     Indication: HYPERTENSION
     Dosage: 2.5 MG;QD, PO
     Route: 048
     Dates: start: 20120504, end: 20120510
  2. LERCANIDIPINE [Concomitant]

REACTIONS (5)
  - BALANCE DISORDER [None]
  - DIARRHOEA [None]
  - RASH [None]
  - JAUNDICE [None]
  - FATIGUE [None]
